FAERS Safety Report 15594699 (Version 2)
Quarter: 2018Q4

REPORT INFORMATION
  Report Type: Spontaneous
  Country: US (occurrence: US)
  Receive Date: 20181106
  Receipt Date: 20181107
  Transmission Date: 20190205
  Serious: No
  Sender: FDA-Public Use
  Company Number: US-SA-2018SA303765

PATIENT
  Age: 31 Year
  Sex: Male

DRUGS (1)
  1. DUPIXENT [Suspect]
     Active Substance: DUPILUMAB
     Indication: DERMATITIS ATOPIC
     Dosage: VIA TWO 300MG SYRINGES
     Dates: start: 20181024

REACTIONS (8)
  - Dermatitis [Unknown]
  - Throat tightness [Unknown]
  - Lethargy [Unknown]
  - Urticaria [Unknown]
  - Rash [Unknown]
  - Rash generalised [Unknown]
  - Injection site urticaria [Unknown]
  - Dyspnoea [Unknown]
